FAERS Safety Report 4928208-7 (Version None)
Quarter: 2006Q1

REPORT INFORMATION
  Report Type: 
  Country: None (occurrence: None)
  Receive Date: 20060223
  Receipt Date: 20060209
  Transmission Date: 20060701
  Serious: Yes (Other)
  Sender: FDA-Public Use
  Company Number: 2006RR-01610

PATIENT
  Age: 34 Year
  Sex: Male
  Weight: 91 kg

DRUGS (2)
  1. FLOUXETINE [Suspect]
     Indication: DEPRESSION
     Dosage: 20 MG, ORAL
     Route: 048
     Dates: start: 20051104, end: 20060122
  2. DICLOFENAC SODIUM [Concomitant]

REACTIONS (2)
  - ARTHRALGIA [None]
  - SHOULDER PAIN [None]
